FAERS Safety Report 19740446 (Version 1)
Quarter: 2021Q3

REPORT INFORMATION
  Report Type: Spontaneous
  Country: GB (occurrence: GB)
  Receive Date: 20210824
  Receipt Date: 20210824
  Transmission Date: 20211014
  Serious: Yes (Other)
  Sender: FDA-Public Use
  Company Number: GB-TEVA-2021-GB-1943703

PATIENT
  Age: 21 Year
  Sex: Female
  Weight: 43 kg

DRUGS (2)
  1. GALPHARM HEALTHCARE IBUPROFEN [Concomitant]
     Active Substance: IBUPROFEN
     Indication: ILL-DEFINED DISORDER
  2. LEVETIRACETAM. [Suspect]
     Active Substance: LEVETIRACETAM
     Indication: BRAIN INJURY
     Dosage: 30 ML DAILY; 15ML
     Route: 048
     Dates: start: 20210101

REACTIONS (1)
  - Depression suicidal [Not Recovered/Not Resolved]

NARRATIVE: CASE EVENT DATE: 20210401
